FAERS Safety Report 5220576-4 (Version None)
Quarter: 2007Q1

REPORT INFORMATION
  Report Type: 
  Country: None (occurrence: None)
  Receive Date: 20070126
  Receipt Date: 20070115
  Transmission Date: 20070707
  Serious: Yes (Hospitalization)
  Sender: FDA-Public Use
  Company Number: IT-JNJFOC-20070104633

PATIENT
  Sex: Female

DRUGS (3)
  1. REMICADE [Suspect]
     Indication: IRIDOCYCLITIS
     Route: 042
  2. REMICADE [Suspect]
     Indication: JUVENILE ARTHRITIS
     Dosage: 2 HOUR INFUSIONS
     Route: 042
  3. PREDNISONE TAB [Concomitant]
     Route: 048

REACTIONS (4)
  - CHOKING SENSATION [None]
  - HOT FLUSH [None]
  - INFUSION RELATED REACTION [None]
  - VOMITING [None]
